FAERS Safety Report 9639383 (Version 1)
Quarter: 2013Q4

REPORT INFORMATION
  Report Type: Spontaneous
  Country: US (occurrence: US)
  Receive Date: 20131022
  Receipt Date: 20131022
  Transmission Date: 20140711
  Serious: Yes (Other)
  Sender: FDA-Public Use
  Company Number: US-RB-059653-13

PATIENT
  Sex: Female

DRUGS (3)
  1. SUBOXONE FILM [Suspect]
     Indication: DRUG DEPENDENCE
     Dosage: SUBOXONE FILM
     Route: 060
     Dates: start: 201206
  2. SUBOXONE FILM [Suspect]
     Indication: DRUG DEPENDENCE
     Dosage: SUBOXONE FILM; ROUTE OF ADMINSITRATION: TRANSSEMINAL
     Route: 050
     Dates: start: 201206
  3. RESTORIL [Suspect]
     Indication: SLEEP DISORDER
     Route: 048
     Dates: start: 201206

REACTIONS (4)
  - Maternal exposure during pregnancy [Recovered/Resolved]
  - Exposure via father [Recovered/Resolved]
  - Abortion spontaneous [Recovered/Resolved]
  - Human chorionic gonadotropin decreased [Recovered/Resolved]
